FAERS Safety Report 7126591-8 (Version None)
Quarter: 2010Q4

REPORT INFORMATION
  Report Type: 
  Country: None (occurrence: None)
  Receive Date: 20101129
  Receipt Date: 20101118
  Transmission Date: 20110411
  Serious: Yes (Hospitalization, Other)
  Sender: FDA-Public Use
  Company Number: FR-CEPHALON-2010006136

PATIENT
  Sex: Female

DRUGS (7)
  1. TREANDA [Suspect]
     Route: 042
     Dates: start: 20100415, end: 20100519
  2. TREANDA [Suspect]
     Route: 042
     Dates: start: 20100701, end: 20101021
  3. OXYCONTIN [Concomitant]
  4. OXYNORM [Concomitant]
  5. LYRICA [Concomitant]
  6. PRIMPERAN [Concomitant]
  7. ISOPTIN [Concomitant]

REACTIONS (5)
  - ANAEMIA [None]
  - ASTHENIA [None]
  - JOINT EFFUSION [None]
  - NEUTROPENIA [None]
  - THROMBOCYTOPENIA [None]
